FAERS Safety Report 16646137 (Version 2)
Quarter: 2019Q3

REPORT INFORMATION
  Report Type: Spontaneous
  Country: JP (occurrence: JP)
  Receive Date: 20190730
  Receipt Date: 20190806
  Transmission Date: 20191004
  Serious: No
  Sender: FDA-Public Use
  Company Number: JP-AMGEN-JPNSP2019120194

PATIENT
  Sex: Female

DRUGS (6)
  1. MAGNESIUM OXIDE. [Concomitant]
     Active Substance: MAGNESIUM OXIDE
     Indication: MENTAL DISORDER
     Dosage: UNK
  2. RISPERDAL [Concomitant]
     Active Substance: RISPERIDONE
     Indication: MENTAL DISORDER
     Dosage: UNK
  3. BENZALIN [NITRAZEPAM] [Concomitant]
     Active Substance: NITRAZEPAM
     Indication: MENTAL DISORDER
     Dosage: UNK
  4. EVENITY [Suspect]
     Active Substance: ROMOSOZUMAB-AQQG
     Indication: OSTEOPOROSIS
     Dosage: 210 MILLIGRAM
     Route: 058
     Dates: start: 20190415
  5. SEROQUEL [Concomitant]
     Active Substance: QUETIAPINE FUMARATE
     Indication: MENTAL DISORDER
     Dosage: UNK
  6. REFLEX [MIRTAZAPINE] [Concomitant]
     Indication: MENTAL DISORDER
     Dosage: UNK

REACTIONS (2)
  - Dysphagia [Recovering/Resolving]
  - Regurgitation [Recovering/Resolving]

NARRATIVE: CASE EVENT DATE: 2019
